FAERS Safety Report 16054501 (Version 2)
Quarter: 2019Q1

REPORT INFORMATION
  Report Type: Report from Study
  Country: None (occurrence: US)
  Receive Date: 20190309
  Receipt Date: 20190312
  Transmission Date: 20190418
  Serious: Yes (Other)
  Sender: FDA-Public Use
  Company Number: US-ABBVIE-19K-163-2693158-00

PATIENT
  Sex: Male

DRUGS (1)
  1. VENCLEXTA [Suspect]
     Active Substance: VENETOCLAX
     Indication: MANTLE CELL LYMPHOMA
     Route: 048
     Dates: start: 20181125, end: 201902

REACTIONS (4)
  - Medical device site haemorrhage [Unknown]
  - Off label use [Unknown]
  - Neutropenia [Unknown]
  - Metastases to spinal cord [Unknown]
